FAERS Safety Report 4646502-4 (Version None)
Quarter: 2005Q2

REPORT INFORMATION
  Report Type: 
  Country: None (occurrence: None)
  Receive Date: 20050427
  Receipt Date: 20040617
  Transmission Date: 20051028
  Serious: No
  Sender: FDA-Public Use
  Company Number: US-GLAXOSMITHKLINE-A0515125A

PATIENT
  Age: 71 Year
  Sex: Female

DRUGS (4)
  1. FLOVENT [Suspect]
     Indication: ASTHMA
     Route: 055
     Dates: start: 20000105
  2. SEREVENT [Suspect]
     Indication: ASTHMA
     Dosage: 2PUFF TWICE PER DAY
     Route: 055
     Dates: start: 19941101
  3. FLOVENT [Concomitant]
  4. DIOVAN [Concomitant]

REACTIONS (2)
  - HYPERTENSION [None]
  - THERAPEUTIC RESPONSE DECREASED [None]
